FAERS Safety Report 8935498 (Version 1)
Quarter: 2012Q4

REPORT INFORMATION
  Report Type: Spontaneous
  Country: US (occurrence: None)
  Receive Date: 20121128
  Receipt Date: 20121128
  Transmission Date: 20130627
  Serious: No
  Sender: FDA-Public Use
  Company Number: None

PATIENT
  Sex: Female
  Weight: 60.78 kg

DRUGS (1)
  1. HALFLYTELY [Suspect]
     Indication: BOWEL PREPARATION

REACTIONS (4)
  - Skin discolouration [None]
  - Tremor [None]
  - Chills [None]
  - Rectal discharge [None]
